FAERS Safety Report 17907828 (Version 1)
Quarter: 2020Q2

REPORT INFORMATION
  Report Type: Spontaneous
  Country: IT (occurrence: IT)
  Receive Date: 20200617
  Receipt Date: 20200617
  Transmission Date: 20200714
  Serious: Yes (Other)
  Sender: FDA-Public Use
  Company Number: IT-ROCHE-2621778

PATIENT
  Age: 59 Year
  Sex: Female
  Weight: 106 kg

DRUGS (5)
  1. ONTRUZANT [Suspect]
     Active Substance: TRASTUZUMAB-DTTB
     Dosage: UNKNOWN.
     Route: 065
     Dates: start: 20200414
  2. DOCETAXEL. [Suspect]
     Active Substance: DOCETAXEL
     Indication: HER2 POSITIVE BREAST CANCER
     Dosage: MOST RECENT DOSE ON 24/FEB/2020
     Route: 065
     Dates: start: 20191122
  3. PERJETA [Suspect]
     Active Substance: PERTUZUMAB
     Indication: HER2 POSITIVE BREAST CANCER
     Dosage: MOST RECENT DOSE ON 31/JAN/2020
     Route: 065
     Dates: start: 20191122
  4. ONTRUZANT [Suspect]
     Active Substance: TRASTUZUMAB-DTTB
     Indication: HER2 POSITIVE BREAST CANCER
     Dosage: TOTAL DOSE WAS 636 MG
     Route: 065
     Dates: start: 20191122
  5. ONTRUZANT [Suspect]
     Active Substance: TRASTUZUMAB-DTTB
     Dosage: UNKNOWN
     Route: 065
     Dates: start: 20200324

REACTIONS (5)
  - Staphylococcal infection [Unknown]
  - Skin disorder [Unknown]
  - Rash [Unknown]
  - Condition aggravated [Unknown]
  - Erythema [Unknown]

NARRATIVE: CASE EVENT DATE: 20191122
